FAERS Safety Report 8046700 (Version 4)
Quarter: 2012Q4

REPORT INFORMATION
  Report Type: Spontaneous
  Country: GB (occurrence: None)
  Receive Date: 20110708
  Receipt Date: 20120817
  Transmission Date: 20130627
  Serious: Yes (Life-Threatening, Hospitalization, Other)
  Sender: FDA-Public Use
  Company Number: 2011AP001326

PATIENT
  Age: 45 Year
  Sex: Female

DRUGS (4)
  1. LEFLUNOMIDE [Suspect]
     Indication: PSORIATIC ARTHROPATHY
     Dosage: 10;20 MG, PO, QD
     Route: 048
     Dates: start: 20101115, end: 201103
  2. LEFLUNOMIDE [Suspect]
     Indication: PSORIATIC ARTHROPATHY
     Dosage: 10;20 MG, PO, QD
     Route: 048
     Dates: start: 20101115, end: 20110411
  3. LEFLUNOMIDE [Suspect]
     Indication: PSORIATIC ARTHROPATHY
     Dosage: 10;20 MG, PO, QD
     Route: 048
     Dates: start: 201103, end: 20110411
  4. ETANERCEPT (ETANERCEPT) [Concomitant]

REACTIONS (6)
  - PULMONARY TOXICITY [None]
  - ACUTE RESPIRATORY DISTRESS SYNDROME [None]
  - LUNG INFILTRATION [None]
  - PNEUMONITIS [None]
  - RESPIRATORY FAILURE [None]
  - PULMONARY FIBROSIS [None]
